FAERS Safety Report 16517632 (Version 1)
Quarter: 2019Q3

REPORT INFORMATION
  Report Type: Report from Study
  Country: US (occurrence: US)
  Receive Date: 20190702
  Receipt Date: 20190702
  Transmission Date: 20191004
  Serious: Yes (Other)
  Sender: FDA-Public Use
  Company Number: US-TAKEDA-2019TUS040428

PATIENT
  Sex: Female

DRUGS (1)
  1. PONATINIB [Suspect]
     Active Substance: PONATINIB
     Indication: NEOPLASM MALIGNANT
     Dosage: 45 MILLIGRAM, QD
     Route: 048
     Dates: start: 20190617

REACTIONS (14)
  - Groin pain [Unknown]
  - Mass [Unknown]
  - Decreased appetite [Unknown]
  - Fatigue [Unknown]
  - Neoplasm progression [Unknown]
  - Memory impairment [Unknown]
  - Hiatus hernia [Unknown]
  - Thyroid mass [Unknown]
  - Atelectasis [Unknown]
  - Ascites [Unknown]
  - Peripheral swelling [Unknown]
  - Abdominal distension [Unknown]
  - Weight decreased [Unknown]
  - Pleural effusion [Unknown]
